FAERS Safety Report 8577171-9 (Version None)
Quarter: 2012Q3

REPORT INFORMATION
  Report Type: 
  Country: None (occurrence: None)
  Receive Date: 20120807
  Receipt Date: 20120725
  Transmission Date: 20120928
  Serious: No
  Sender: FDA-Public Use
  Company Number: US-ASTRAZENECA-2012SE53248

PATIENT
  Age: 71 Year
  Sex: Female
  Weight: 64.4 kg

DRUGS (3)
  1. METOPROLOL SUCCINATE [Suspect]
     Indication: HYPERTENSION
     Route: 048
  2. CRESTOR [Suspect]
     Indication: BLOOD CHOLESTEROL ABNORMAL
     Route: 048
  3. GENERIC OF PLAVIX [Concomitant]

REACTIONS (1)
  - INCORRECT STORAGE OF DRUG [None]
